FAERS Safety Report 18842373 (Version 1)
Quarter: 2021Q1

REPORT INFORMATION
  Report Type: Report from Study
  Country: US (occurrence: US)
  Receive Date: 20210203
  Receipt Date: 20210203
  Transmission Date: 20210419
  Serious: Yes (Hospitalization, Other)
  Sender: FDA-Public Use
  Company Number: US-JNJFOC-A-NJ2018-175158

PATIENT
  Age: 56 Year
  Sex: Male
  Weight: 104.31 kg

DRUGS (17)
  1. FLUTICASONE;UMECLIDINIUM;VILANTEROL [Concomitant]
     Dosage: 100?62.5?20 MCG INHALE 1 PUFF/DAY
  2. UPTRAVI [Suspect]
     Active Substance: SELEXIPAG
     Indication: PULMONARY ARTERIAL HYPERTENSION
     Dosage: 1600 MCG, BID
     Route: 048
  3. TIOTROPIUM BROMIDE [Concomitant]
     Active Substance: TIOTROPIUM BROMIDE
  4. FLUTICASONE;VILANTEROL [Concomitant]
     Active Substance: FLUTICASONE FUROATE\VILANTEROL TRIFENATATE
     Dosage: INHALE 1 PUFF 1X/DAY
  5. GUAIFENESIN. [Concomitant]
     Active Substance: GUAIFENESIN
     Dosage: 2 TABLETS 2X/DAY
     Route: 048
  6. OXYGEN. [Concomitant]
     Active Substance: OXYGEN
  7. UPTRAVI [Suspect]
     Active Substance: SELEXIPAG
     Dosage: 400 MCG, BID
     Route: 048
  8. FLUTICASONE PROPIONATE. [Concomitant]
     Active Substance: FLUTICASONE PROPIONATE
     Dosage: USE 1 SPRAY IN EACH NOSTRIL TWICE DAILY
     Route: 045
  9. PRAVASTATIN SODIUM. [Concomitant]
     Active Substance: PRAVASTATIN SODIUM
     Route: 048
  10. OPSUMIT [Suspect]
     Active Substance: MACITENTAN
     Indication: PULMONARY ARTERIAL HYPERTENSION
     Dosage: 10 MG, QD
     Route: 048
     Dates: start: 20190222
  11. ELIQUIS [Concomitant]
     Active Substance: APIXABAN
  12. POTASSIUM CHLORIDE. [Concomitant]
     Active Substance: POTASSIUM CHLORIDE
     Route: 048
  13. ALBUTEROL SULFATE. [Concomitant]
     Active Substance: ALBUTEROL SULFATE
     Dosage: INHALE 2 PUFFS EVERY 4 HRS IF NEEDED FOR WHEEZING OR SOB
  14. ASPRIN [Concomitant]
     Active Substance: ASPIRIN
  15. METOLAZONE. [Concomitant]
     Active Substance: METOLAZONE
     Route: 048
  16. SILDENAFIL CITRATE. [Concomitant]
     Active Substance: SILDENAFIL CITRATE
     Route: 048
  17. SPIRONOLACTONE. [Concomitant]
     Active Substance: SPIRONOLACTONE
     Route: 048

REACTIONS (17)
  - Heart rate increased [Unknown]
  - Pyrexia [Unknown]
  - Oxygen saturation decreased [Unknown]
  - Chronic obstructive pulmonary disease [Recovered/Resolved]
  - Weight increased [Recovered/Resolved]
  - Dry throat [Not Recovered/Not Resolved]
  - Hospitalisation [Unknown]
  - Cough [Unknown]
  - Diarrhoea [Unknown]
  - Fluid retention [Unknown]
  - Bronchitis chronic [Unknown]
  - Scrotal operation [Unknown]
  - Eye discharge [Unknown]
  - Constipation [Unknown]
  - Scrotal abscess [Unknown]
  - Acute respiratory failure [Recovered/Resolved]
  - Nausea [Unknown]

NARRATIVE: CASE EVENT DATE: 201904
